FAERS Safety Report 20654618 (Version 5)
Quarter: 2023Q2

REPORT INFORMATION
  Report Type: Spontaneous
  Country: IN (occurrence: IN)
  Receive Date: 20220330
  Receipt Date: 20230622
  Transmission Date: 20230722
  Serious: Yes (Other)
  Sender: FDA-Public Use
  Company Number: IN-PFIZER INC-202200444611

PATIENT
  Age: 71 Year
  Sex: Female
  Weight: 80 kg

DRUGS (3)
  1. PALBOCICLIB [Suspect]
     Active Substance: PALBOCICLIB
     Indication: Breast cancer metastatic
     Dosage: 100 MG, CYCLIC (X3WK FOLLOW 1 WK OFF FOR 3 MONTH)
     Route: 048
     Dates: start: 202112
  2. PALBOCICLIB [Suspect]
     Active Substance: PALBOCICLIB
     Dosage: 100 MG, CYCLIC (X3WK FOLLOW 1 WK OFF FOR 3 MONTH)
     Route: 048
     Dates: start: 20211225
  3. ZOLEDRONIC ACID [Concomitant]
     Active Substance: ZOLEDRONIC ACID
     Dosage: 6 MONTHLY

REACTIONS (8)
  - Blood pressure increased [Unknown]
  - Skin disorder [Unknown]
  - Heart rate increased [Unknown]
  - Platelet count decreased [Unknown]
  - Respiratory rate increased [Unknown]
  - Weight increased [Unknown]
  - Oedema peripheral [Unknown]
  - Breast disorder [Unknown]
